FAERS Safety Report 25990616 (Version 1)
Quarter: 2025Q4

REPORT INFORMATION
  Report Type: Spontaneous
  Country: EU (occurrence: EU)
  Receive Date: 20251103
  Receipt Date: 20251103
  Transmission Date: 20260118
  Serious: Yes (Other)
  Sender: NOVO NORDISK
  Company Number: EU-NOVOPROD-1535522

PATIENT
  Age: 320 Month
  Sex: Female
  Weight: 67 kg

DRUGS (2)
  1. FIASP [Suspect]
     Active Substance: INSULIN ASPART
     Dosage: UNK(RESUMED)
  2. FIASP [Suspect]
     Active Substance: INSULIN ASPART
     Indication: Type 1 diabetes mellitus
     Dosage: UNK
     Dates: start: 20250926, end: 20250929

REACTIONS (4)
  - Pyrexia [Recovering/Resolving]
  - Infusion site oedema [Recovering/Resolving]
  - Infusion site induration [Recovering/Resolving]
  - Infusion site oedema [Recovering/Resolving]

NARRATIVE: CASE EVENT DATE: 20250926
